FAERS Safety Report 8295228-7 (Version None)
Quarter: 2012Q2

REPORT INFORMATION
  Report Type: 
  Country: None (occurrence: None)
  Receive Date: 20120418
  Receipt Date: 20120410
  Transmission Date: 20120825
  Serious: No
  Sender: FDA-Public Use
  Company Number: US-BAXTER-2012BAX002501

PATIENT
  Sex: Female
  Weight: 58.18 kg

DRUGS (6)
  1. CYTOXAN [Suspect]
     Indication: BREAST CANCER
     Dates: start: 20110520, end: 20110907
  2. CALCIUM WITH VITAMIN D             /00944201/ [Concomitant]
     Route: 048
  3. DOXORUBICIN HCL [Suspect]
     Indication: BREAST CANCER
     Route: 042
     Dates: start: 20110520, end: 20110907
  4. DOCETAXEL [Suspect]
     Indication: BREAST CANCER
     Route: 042
     Dates: start: 20110520, end: 20110907
  5. RANITIDINE [Concomitant]
     Route: 048
  6. FISH OIL [Concomitant]
     Route: 048

REACTIONS (2)
  - ALOPECIA [None]
  - NEUROPATHY PERIPHERAL [None]
